FAERS Safety Report 12313349 (Version 1)
Quarter: 2016Q2

REPORT INFORMATION
  Report Type: Spontaneous
  Country: US (occurrence: US)
  Receive Date: 20160428
  Receipt Date: 20160428
  Transmission Date: 20160815
  Serious: No
  Sender: FDA-Public Use
  Company Number: US-PFIZER INC-2016236210

PATIENT
  Age: 76 Year
  Sex: Male

DRUGS (7)
  1. PSEUDOEPHEDRINE [Suspect]
     Active Substance: PSEUDOEPHEDRINE
  2. SOTALOL. [Suspect]
     Active Substance: SOTALOL
     Dosage: UNK
  3. ALAVERT ALLERGY [Suspect]
     Active Substance: LORATADINE
  4. CLARITIN [Suspect]
     Active Substance: LORATADINE
  5. CODEINE [Suspect]
     Active Substance: CODEINE
  6. WAL ITIN D [Suspect]
     Active Substance: LORATADINE\PSEUDOEPHEDRINE SULFATE
  7. SODIUM SULAMYD [Suspect]
     Active Substance: SULFACETAMIDE SODIUM

REACTIONS (1)
  - Drug hypersensitivity [Not Recovered/Not Resolved]
